FAERS Safety Report 8793611 (Version 1)
Quarter: 2012Q4

REPORT INFORMATION
  Report Type: 
  Country: FR (occurrence: FR)
  Receive Date: 20120917
  Receipt Date: 20120917
  Transmission Date: 20130627
  Serious: Yes (Hospitalization)
  Sender: FDA-Public Use
  Company Number: FR-VIIV HEALTHCARE LIMITED-B0827569A

PATIENT
  Age: 36 None
  Sex: Female

DRUGS (2)
  1. COMBIVIR [Suspect]
     Indication: HIV INFECTION
     Route: 048
     Dates: end: 201109
  2. KALETRA [Suspect]
     Indication: HIV INFECTION
     Route: 048
     Dates: end: 201109

REACTIONS (10)
  - Hepatocellular injury [Recovered/Resolved]
  - General physical health deterioration [Unknown]
  - Decreased appetite [Unknown]
  - Vomiting [Unknown]
  - Malaise [Unknown]
  - Postictal state [Unknown]
  - Tachycardia [Unknown]
  - Hypotension [Unknown]
  - Weight decreased [Unknown]
  - Asthenia [Unknown]
